FAERS Safety Report 12720178 (Version 2)
Quarter: 2016Q4

REPORT INFORMATION
  Report Type: Report from Study
  Country: PL (occurrence: PL)
  Receive Date: 20160907
  Receipt Date: 20161228
  Transmission Date: 20170207
  Serious: Yes (Other)
  Sender: FDA-Public Use
  Company Number: PL-SUN PHARMACEUTICAL INDUSTRIES LTD-2016RR-123346

PATIENT
  Sex: Male

DRUGS (20)
  1. TOPOTECAN [Suspect]
     Active Substance: TOPOTECAN HYDROCHLORIDE
     Indication: METASTASES TO LUNG
  2. VINCRISTINE [Suspect]
     Active Substance: VINCRISTINE
     Indication: SARCOMA
  3. IDARUBICIN [Suspect]
     Active Substance: IDARUBICIN
     Indication: METASTASES TO LUNG
     Dosage: UNK
     Route: 048
  4. IFOSFAMIDE. [Suspect]
     Active Substance: IFOSFAMIDE
     Indication: METASTASES TO LUNG
  5. CARBOPLATIN. [Suspect]
     Active Substance: CARBOPLATIN
     Indication: SARCOMA
     Dosage: TWO CYCLES
     Route: 065
  6. DOXORUBICIN [Suspect]
     Active Substance: DOXORUBICIN
     Indication: SARCOMA
  7. TROFOSFAMIDE [Suspect]
     Active Substance: TROFOSFAMIDE
     Indication: METASTASES TO LUNG
     Dosage: UNK
     Route: 048
  8. TROFOSFAMIDE [Suspect]
     Active Substance: TROFOSFAMIDE
     Indication: SARCOMA
     Route: 048
  9. ETOPOSIDE. [Suspect]
     Active Substance: ETOPOSIDE
     Indication: METASTASES TO LUNG
     Dosage: UNK
     Route: 048
  10. IDARUBICIN [Suspect]
     Active Substance: IDARUBICIN
     Indication: SARCOMA
     Dosage: UNK
     Route: 048
  11. ACTINOMYCIN D [Suspect]
     Active Substance: DACTINOMYCIN
     Indication: METASTASES TO LUNG
     Dosage: UNK
     Route: 065
  12. CARBOPLATIN. [Suspect]
     Active Substance: CARBOPLATIN
     Indication: METASTASES TO LUNG
     Dosage: TWO CYCLES
     Route: 065
  13. ACTINOMYCIN D [Suspect]
     Active Substance: DACTINOMYCIN
     Indication: SARCOMA
  14. ETOPOSIDE. [Suspect]
     Active Substance: ETOPOSIDE
     Indication: SARCOMA
     Dosage: UNK
     Route: 048
  15. DOXORUBICIN [Suspect]
     Active Substance: DOXORUBICIN
     Indication: METASTASES TO LUNG
     Dosage: UNK
     Route: 065
  16. EPIRUBICIN [Suspect]
     Active Substance: EPIRUBICIN
     Indication: SARCOMA
  17. TOPOTECAN [Suspect]
     Active Substance: TOPOTECAN HYDROCHLORIDE
     Indication: SARCOMA
     Dosage: UNK
     Route: 065
  18. VINCRISTINE [Suspect]
     Active Substance: VINCRISTINE
     Indication: METASTASES TO LUNG
     Dosage: UNK
     Route: 065
  19. IFOSFAMIDE. [Suspect]
     Active Substance: IFOSFAMIDE
     Indication: SARCOMA
     Dosage: UNK
     Route: 065
  20. EPIRUBICIN [Suspect]
     Active Substance: EPIRUBICIN
     Indication: METASTASES TO LUNG
     Dosage: UNK
     Route: 065

REACTIONS (1)
  - Bone marrow failure [Unknown]
